FAERS Safety Report 6444652-3 (Version None)
Quarter: 2009Q4

REPORT INFORMATION
  Report Type: 
  Country: None (occurrence: None)
  Receive Date: 20091116
  Receipt Date: 20091116
  Transmission Date: 20100525
  Serious: Yes (Disabling, Other)
  Sender: FDA-Public Use
  Company Number: None

PATIENT
  Sex: Male
  Weight: 90.7194 kg

DRUGS (2)
  1. HYDROCODONE BITARTRATE + ACETAMINOPHEN [Suspect]
     Indication: HIP ARTHROPLASTY
     Dosage: 750 1 - EVERY 4-6 HRS OFF AND ON
     Dates: start: 20090923, end: 20091015
  2. HYDROCODONE BITARTRATE + ACETAMINOPHEN [Suspect]
     Indication: PAIN
     Dosage: 750 1 - EVERY 4-6 HRS OFF AND ON
     Dates: start: 20090923, end: 20091015

REACTIONS (3)
  - DIPLOPIA [None]
  - HEADACHE [None]
  - VISION BLURRED [None]
